FAERS Safety Report 13862187 (Version 1)
Quarter: 2017Q3

REPORT INFORMATION
  Report Type: Spontaneous
  Country: US (occurrence: US)
  Receive Date: 20170812
  Receipt Date: 20170812
  Transmission Date: 20171127
  Serious: No
  Sender: FDA-Public Use
  Company Number: US-009507513-1708USA002846

PATIENT
  Age: 61 Year
  Sex: Female

DRUGS (1)
  1. INTRON A [Suspect]
     Active Substance: INTERFERON ALFA-2B
     Indication: MYCOSIS FUNGOIDES
     Dosage: 0.66 ML(4 MILL UNITS) 3 TIMES A WEEK, STRENGTH 18MMU/3.8 ML
     Route: 058
     Dates: start: 20170425, end: 20170713

REACTIONS (3)
  - Nervousness [Unknown]
  - Irritability [Unknown]
  - Back pain [Unknown]

NARRATIVE: CASE EVENT DATE: 20170713
